FAERS Safety Report 7647672-6 (Version None)
Quarter: 2011Q3

REPORT INFORMATION
  Report Type: 
  Country: None (occurrence: None)
  Receive Date: 20110801
  Receipt Date: 20110801
  Transmission Date: 20111222
  Serious: Yes (Hospitalization)
  Sender: FDA-Public Use
  Company Number: None

PATIENT
  Age: 16 Year
  Sex: Male
  Weight: 81.646 kg

DRUGS (2)
  1. VERSED [Suspect]
     Indication: WISDOM TEETH REMOVAL
  2. VERSED [Suspect]
     Indication: SEDATIVE THERAPY

REACTIONS (9)
  - AGGRESSION [None]
  - TONGUE BITING [None]
  - INCOHERENT [None]
  - SCREAMING [None]
  - BRUXISM [None]
  - CONTUSION [None]
  - AGITATION [None]
  - HYPERVENTILATION [None]
  - LOSS OF CONSCIOUSNESS [None]
